FAERS Safety Report 8428416 (Version 3)
Quarter: 2013Q1

REPORT INFORMATION
  Report Type: Spontaneous
  Country: US (occurrence: US)
  Receive Date: 20120227
  Receipt Date: 20130325
  Transmission Date: 20140127
  Serious: Yes (Other)
  Sender: FDA-Public Use
  Company Number: US-JNJFOC-20120209932

PATIENT
  Age: 83 Year
  Sex: Male
  Weight: 69.39 kg

DRUGS (11)
  1. IBUPROFEN [Suspect]
     Indication: PRODUCT USED FOR UNKNOWN INDICATION
     Route: 065
  2. MELOXICAM [Suspect]
     Indication: PRODUCT USED FOR UNKNOWN INDICATION
     Route: 065
  3. LYRICA [Suspect]
     Indication: NEURALGIA
     Dosage: 2 CAPSULES AT BEDTIME
     Route: 048
     Dates: start: 20120210, end: 20120212
  4. CARVEDILOL [Concomitant]
     Indication: HYPERTENSION
  5. ALL OTHER THERAPEUTIC PRODUCTS [Concomitant]
     Indication: PAIN IN EXTREMITY
     Route: 065
  6. ASPIRIN [Concomitant]
     Indication: CARDIAC DISORDER
  7. SIMVASTATIN [Concomitant]
     Indication: BLOOD CHOLESTEROL INCREASED
  8. GLYBURIDE [Concomitant]
     Indication: DIABETES MELLITUS
  9. XALATAN [Concomitant]
     Indication: PRODUCT USED FOR UNKNOWN INDICATION
  10. COQ10 [Concomitant]
     Indication: PRODUCT USED FOR UNKNOWN INDICATION
  11. FENTANYL [Concomitant]
     Indication: NEUROPATHY PERIPHERAL
     Route: 065

REACTIONS (10)
  - Blindness transient [Recovered/Resolved]
  - Vision blurred [Unknown]
  - Pupillary reflex impaired [Unknown]
  - Intraocular pressure increased [Unknown]
  - Heterophoria [Unknown]
  - Corneal dystrophy [Unknown]
  - Gastritis [Unknown]
  - Diplopia [Recovering/Resolving]
  - Dizziness [Recovered/Resolved]
  - Visual acuity reduced [Not Recovered/Not Resolved]
